FAERS Safety Report 8860013 (Version 1)
Quarter: 2012Q4

REPORT INFORMATION
  Report Type: 
  Country: US (occurrence: US)
  Receive Date: 20121025
  Receipt Date: 20121025
  Transmission Date: 20130627
  Serious: Yes (Hospitalization)
  Sender: FDA-Public Use
  Company Number: US-BAYER-2012-109899

PATIENT
  Age: 39 Year
  Sex: Female

DRUGS (5)
  1. YAZ [Suspect]
     Indication: ACNE
  2. ACCUTANE [Concomitant]
     Dosage: UNK
     Dates: start: 20090105
  3. CLARAVIS [Concomitant]
  4. RETIN-A MICRO [Concomitant]
  5. FINACEA GEL [Concomitant]

REACTIONS (1)
  - Intracranial venous sinus thrombosis [None]
